FAERS Safety Report 7001598-X (Version None)
Quarter: 2010Q3

REPORT INFORMATION
  Report Type: 
  Country: None (occurrence: None)
  Receive Date: 20100917
  Receipt Date: 20100917
  Transmission Date: 20110219
  Serious: Yes (Hospitalization)
  Sender: FDA-Public Use
  Company Number: None

PATIENT
  Age: 59 Year
  Sex: Male
  Weight: 130 kg

DRUGS (13)
  1. SAPHRIS [Suspect]
     Indication: PSYCHOTIC DISORDER
     Dosage: 5MG SL BID
     Route: 060
     Dates: start: 20100717
  2. ASPIRIN [Concomitant]
  3. ATENOLOL [Concomitant]
  4. CACO3 [Concomitant]
  5. DEPAKOTE [Concomitant]
  6. DOXAZOSIN MESYLATE [Concomitant]
  7. GABAPENTIN [Concomitant]
  8. DOXEPIN HCL [Concomitant]
  9. HYDROXYZ [Concomitant]
  10. LOXAPINE [Concomitant]
  11. METFORMIN [Concomitant]
  12. TRAZODONE HCL [Concomitant]
  13. OMEPRAZOLE [Concomitant]

REACTIONS (3)
  - DIZZINESS [None]
  - NAUSEA [None]
  - RESTLESSNESS [None]
